FAERS Safety Report 20264140 (Version 4)
Quarter: 2022Q2

REPORT INFORMATION
  Report Type: Report from Study
  Country: MX (occurrence: MX)
  Receive Date: 20211231
  Receipt Date: 20220408
  Transmission Date: 20220721
  Serious: Yes (Death, Hospitalization)
  Sender: FDA-Public Use
  Company Number: MX-ABBVIE-21K-107-4217964-00

PATIENT
  Age: 78 Year
  Sex: Male
  Weight: 45 kg

DRUGS (5)
  1. VENCLEXTA [Suspect]
     Active Substance: VENETOCLAX
     Indication: Chronic lymphocytic leukaemia
     Route: 048
     Dates: start: 20211120, end: 20220107
  2. VENCLEXTA [Suspect]
     Active Substance: VENETOCLAX
     Route: 048
     Dates: start: 20220119, end: 202202
  3. SALMETEROL [Concomitant]
     Active Substance: SALMETEROL
     Indication: Product used for unknown indication
  4. KETOTIFEN [Concomitant]
     Active Substance: KETOTIFEN
     Indication: Chronic lymphocytic leukaemia
     Dates: start: 20220101, end: 202202
  5. MONTELUKAST [Concomitant]
     Active Substance: MONTELUKAST SODIUM
     Indication: Chronic lymphocytic leukaemia
     Dates: start: 20220101, end: 20220104

REACTIONS (8)
  - Asthenia [Fatal]
  - Feeding disorder [Fatal]
  - Gastrointestinal disorder [Not Recovered/Not Resolved]
  - Arthralgia [Not Recovered/Not Resolved]
  - Fatigue [Not Recovered/Not Resolved]
  - Pain [Unknown]
  - Hepatic pain [Not Recovered/Not Resolved]
  - Confusional state [Unknown]

NARRATIVE: CASE EVENT DATE: 20211101
